FAERS Safety Report 17804506 (Version 6)
Quarter: 2021Q3

REPORT INFORMATION
  Report Type: Report from Study
  Country: IE (occurrence: IE)
  Receive Date: 20200519
  Receipt Date: 20210909
  Transmission Date: 20211014
  Serious: Yes (Hospitalization, Other)
  Sender: FDA-Public Use
  Company Number: IE-TAKEDA-2020TUS022701

PATIENT
  Age: 51 Year
  Sex: Female

DRUGS (8)
  1. INFLIXIMAB [Concomitant]
     Active Substance: INFLIXIMAB
     Dosage: UNK
     Route: 042
     Dates: start: 20191106, end: 20191217
  2. VEDOLIZUMAB [Suspect]
     Active Substance: VEDOLIZUMAB
     Indication: COLITIS ULCERATIVE
     Dosage: UNK
     Route: 042
     Dates: start: 20200225, end: 20201118
  3. VIT D [Concomitant]
     Active Substance: VITAMIN D NOS
     Dosage: UNK UNK, Q4WEEKS
     Route: 048
  4. VITAMIN B12 [Concomitant]
     Active Substance: CYANOCOBALAMIN
     Dosage: UNK UNK, Q3MONTHS
     Route: 042
  5. MEZAVANT [Concomitant]
     Active Substance: MESALAMINE
     Dosage: 1400 MILLIGRAM, QD
     Route: 048
  6. MEZAVANT [Concomitant]
     Active Substance: MESALAMINE
     Dosage: 2400 MILLIGRAM, QD
     Route: 048
  7. INFLIXIMAB [Concomitant]
     Active Substance: INFLIXIMAB
     Dosage: UNK
     Route: 042
     Dates: end: 20200106
  8. VIT D [Concomitant]
     Active Substance: VITAMIN D NOS
     Dosage: UNK UNK, MONTHLY

REACTIONS (1)
  - Breast cancer [Not Recovered/Not Resolved]
